FAERS Safety Report 11737760 (Version 1)
Quarter: 2015Q4

REPORT INFORMATION
  Report Type: Spontaneous
  Country: US (occurrence: None)
  Receive Date: 20151112
  Receipt Date: 20151112
  Transmission Date: 20160304
  Serious: No
  Sender: FDA-Public Use
  Company Number: None

PATIENT
  Age: 33 Year
  Sex: Female
  Weight: 58.06 kg

DRUGS (3)
  1. CLARITHROMYCIN 500MG [Suspect]
     Active Substance: CLARITHROMYCIN
     Indication: SINUSITIS
     Dosage: 2 PILLS
     Route: 048
  2. FLUTICASONE SPRAY [Concomitant]
  3. AZITHROMYCIN [Concomitant]
     Active Substance: AZITHROMYCIN ANHYDROUS

REACTIONS (7)
  - Diarrhoea [None]
  - Hypersensitivity [None]
  - Dyspnoea [None]
  - Abdominal pain [None]
  - Dizziness [None]
  - Pain [None]
  - Dysgeusia [None]

NARRATIVE: CASE EVENT DATE: 20151109
